FAERS Safety Report 5745168-X (Version None)
Quarter: 2008Q2

REPORT INFORMATION
  Report Type: 
  Country: None (occurrence: None)
  Receive Date: 20080521
  Receipt Date: 20080506
  Transmission Date: 20081010
  Serious: Yes (Death, Hospitalization)
  Sender: FDA-Public Use
  Company Number: DE-GENENTECH-261038

PATIENT
  Sex: Female

DRUGS (3)
  1. AVASTIN [Suspect]
     Indication: BRONCHIAL CARCINOMA
     Route: 042
     Dates: start: 20080101
  2. CARBOPLATIN [Suspect]
     Indication: BRONCHIAL CARCINOMA
     Dosage: UNK, UNK
     Route: 042
     Dates: start: 20080101
  3. GEMCITABINE [Suspect]
     Indication: BRONCHIAL CARCINOMA
     Dosage: UNK, UNK
     Route: 042
     Dates: start: 20080101

REACTIONS (3)
  - METASTASES TO PLEURA [None]
  - PNEUMONIA [None]
  - PYOTHORAX [None]
